FAERS Safety Report 7979516-7 (Version None)
Quarter: 2011Q4

REPORT INFORMATION
  Report Type: 
  Country: None (occurrence: None)
  Receive Date: 20111214
  Receipt Date: 20111209
  Transmission Date: 20120403
  Serious: Yes (Death, Hospitalization, Other)
  Sender: FDA-Public Use
  Company Number: PHHY2011CA106277

PATIENT
  Sex: Male

DRUGS (6)
  1. HYDROMORPHONE HCL [Concomitant]
  2. DILAUDID [Concomitant]
  3. PANTOLOC ^BYK GULDEN^ [Concomitant]
  4. AFINITOR [Suspect]
     Indication: PANCREATIC NEUROENDOCRINE TUMOUR METASTATIC
     Dosage: 10 MG, QD
     Route: 048
     Dates: start: 20110922, end: 20111115
  5. CRESTOR [Concomitant]
  6. MAVIK [Concomitant]

REACTIONS (6)
  - LOBAR PNEUMONIA [None]
  - PYREXIA [None]
  - DEATH [None]
  - LUNG INFILTRATION [None]
  - CHILLS [None]
  - ATRIAL FIBRILLATION [None]
